FAERS Safety Report 20626468 (Version 1)
Quarter: 2022Q1

REPORT INFORMATION
  Report Type: Spontaneous
  Country: US (occurrence: None)
  Receive Date: 20220322
  Receipt Date: 20220322
  Transmission Date: 20220423
  Serious: Yes (Death)
  Sender: FDA-Public Use
  Company Number: None

PATIENT
  Age: 66 Year
  Sex: Female
  Weight: 189.1 kg

DRUGS (15)
  1. VERZENIO [Suspect]
     Active Substance: ABEMACICLIB
     Indication: Breast cancer
     Dosage: FREQUENCY : TWICE A DAY;?
     Route: 048
  2. APREPITANT [Concomitant]
  3. BACLOFEN [Concomitant]
     Active Substance: BACLOFEN
  4. CIPROFLOXACIN [Concomitant]
  5. DEXAMETHASONE [Concomitant]
     Active Substance: DEXAMETHASONE
  6. LETROZOLE [Concomitant]
  7. LIDOCAINE-PRILOCAINE [Concomitant]
  8. MULTIVITAMIN [Concomitant]
  9. NYSTATIN [Concomitant]
  10. PREDNISONE [Concomitant]
  11. PROCHLORPERAZINE [Concomitant]
  12. SERTRALINE [Concomitant]
  13. TOLTERODINE [Concomitant]
  14. VITAMIN C [Concomitant]
     Active Substance: ASCORBIC ACID
  15. VITAMIN D3 [Concomitant]

REACTIONS (1)
  - Death [None]
